FAERS Safety Report 8880311 (Version 1)
Quarter: 2012Q4

REPORT INFORMATION
  Report Type: 
  Country: GB (occurrence: GB)
  Receive Date: 20121031
  Receipt Date: 20121031
  Transmission Date: 20130627
  Serious: Yes (Hospitalization)
  Sender: FDA-Public Use
  Company Number: PHHY2012GB096170

PATIENT
  Age: 87 Year
  Sex: Male

DRUGS (1)
  1. MIRTAZAPINE [Suspect]
     Indication: DEPRESSION
     Dosage: 15 mg, QHS

REACTIONS (6)
  - Atrial fibrillation [Recovered/Resolved]
  - Extensor plantar response [Recovered/Resolved]
  - Unresponsive to stimuli [Recovered/Resolved]
  - Gait disturbance [Recovered/Resolved]
  - Mental status changes [Recovered/Resolved]
  - Hyporeflexia [Recovered/Resolved]
